FAERS Safety Report 13719563 (Version 1)
Quarter: 2017Q3

REPORT INFORMATION
  Report Type: Spontaneous
  Country: US (occurrence: US)
  Receive Date: 20170705
  Receipt Date: 20170705
  Transmission Date: 20171127
  Serious: Yes (Other)
  Sender: FDA-Public Use
  Company Number: US-ROCHE-1926469

PATIENT
  Sex: Female

DRUGS (1)
  1. GAZYVA [Suspect]
     Active Substance: OBINUTUZUMAB
     Indication: CHRONIC LYMPHOCYTIC LEUKAEMIA
     Dosage: ONE TIME DOSE ;ONGOING: NO
     Route: 042
     Dates: start: 20170401, end: 20170401

REACTIONS (1)
  - Infusion related reaction [Recovered/Resolved]
